FAERS Safety Report 5577017-7 (Version None)
Quarter: 2007Q4

REPORT INFORMATION
  Report Type: 
  Country: None (occurrence: None)
  Receive Date: 20071228
  Receipt Date: 20071220
  Transmission Date: 20080405
  Serious: Yes (Hospitalization)
  Sender: FDA-Public Use
  Company Number: US-RANBAXY-2007US-12292

PATIENT

DRUGS (4)
  1. ISOPTIN SR [Suspect]
     Indication: HYPERTENSION
     Route: 048
     Dates: end: 20060302
  2. STRONTIUM RANELATE [Suspect]
     Indication: OSTEOPOROSIS
     Dosage: 2 G, UNK
     Route: 065
     Dates: start: 20060201, end: 20060302
  3. BECLOMETHASONE DIPROPIONATE [Suspect]
     Indication: DRUG USE FOR UNKNOWN INDICATION
     Dosage: 250 MG, UNK
     Route: 050
     Dates: end: 20060302
  4. TERIPARATIDE [Concomitant]
     Indication: OSTEOPOROSIS
     Dosage: UNK
     Route: 065

REACTIONS (12)
  - BLOOD CREATININE INCREASED [None]
  - CYTOLYTIC HEPATITIS [None]
  - FRACTURE [None]
  - GAMMA-GLUTAMYLTRANSFERASE INCREASED [None]
  - HEPATIC ENZYME INCREASED [None]
  - LUNG INFECTION [None]
  - PHLEBITIS [None]
  - PULMONARY EMBOLISM [None]
  - RASH ERYTHEMATOUS [None]
  - RASH MACULO-PAPULAR [None]
  - TOXIC SKIN ERUPTION [None]
  - TRANSAMINASES INCREASED [None]
